FAERS Safety Report 6201023-2 (Version None)
Quarter: 2009Q2

REPORT INFORMATION
  Report Type: 
  Country: None (occurrence: None)
  Receive Date: 20090526
  Receipt Date: 20090514
  Transmission Date: 20091009
  Serious: Yes (Disabling)
  Sender: FDA-Public Use
  Company Number: FR-ELI_LILLY_AND_COMPANY-FR200905003018

PATIENT
  Sex: Male

DRUGS (5)
  1. BYETTA [Suspect]
     Dosage: 5 UG, 2/D
     Route: 058
     Dates: start: 20080501
  2. BYETTA [Suspect]
     Dosage: 5 UG, DAILY (1/D)
     Route: 058
  3. BYETTA [Suspect]
     Dosage: 10 UG, UNK
     Route: 058
     Dates: end: 20090205
  4. TAHOR [Concomitant]
     Dosage: 80 MG, DAILY (1/D)
     Dates: start: 20060501
  5. TAHOR [Concomitant]
     Dosage: 40 MG, DAILY (1/D)
     Dates: end: 20081201

REACTIONS (2)
  - INSOMNIA [None]
  - MYALGIA [None]
